FAERS Safety Report 10242594 (Version 1)
Quarter: 2014Q2

REPORT INFORMATION
  Report Type: Report from Study
  Country: US (occurrence: US)
  Receive Date: 20140617
  Receipt Date: 20140617
  Transmission Date: 20141212
  Serious: Yes (Other)
  Sender: FDA-Public Use
  Company Number: US-ABBVIE-14P-163-1245313-00

PATIENT
  Age: 69 Year
  Sex: Female
  Weight: 71.73 kg

DRUGS (10)
  1. HUMIRA [Suspect]
     Indication: ERYTHRODERMIC PSORIASIS
     Dates: start: 201403
  2. VIMPAT [Concomitant]
     Indication: EPILEPSY
  3. VALIUM [Concomitant]
     Indication: POSTICTAL PARALYSIS
     Dosage: 5 MG AND 2.5 MG ONE IN MORNING AND ONE IN EVENING
  4. PREDNISONE [Concomitant]
     Indication: SARCOIDOSIS
  5. PREDNISONE [Concomitant]
     Indication: HODGKIN^S DISEASE
  6. RATUXIN [Concomitant]
     Indication: HODGKIN^S DISEASE
  7. BENADRYL [Concomitant]
     Indication: PRURITUS
  8. TYLENOL [Concomitant]
     Indication: PAIN
  9. TYLENOL [Concomitant]
     Indication: ARTHRALGIA
  10. MULTIVITAMIN [Concomitant]
     Indication: PRODUCT USED FOR UNKNOWN INDICATION

REACTIONS (3)
  - Blood uric acid increased [Unknown]
  - Cataract operation [Recovering/Resolving]
  - Off label use [Recovering/Resolving]
